FAERS Safety Report 13195702 (Version 1)
Quarter: 2017Q1

REPORT INFORMATION
  Report Type: Other
  Country: NL (occurrence: NL)
  Receive Date: 20170208
  Receipt Date: 20170208
  Transmission Date: 20170428
  Serious: Yes (Congenital Anomaly, Other)
  Sender: FDA-Public Use
  Company Number: NL-LUPIN PHARMACEUTICALS INC.-2017-00562

PATIENT
  Sex: Male
  Weight: 2.88 kg

DRUGS (11)
  1. LAMOTRIGINE. [Suspect]
     Active Substance: LAMOTRIGINE
     Dosage: AM
     Route: 065
  2. LAMOTRIGINE. [Suspect]
     Active Substance: LAMOTRIGINE
     Dosage: PM
     Route: 065
  3. VALPROIC ACID. [Suspect]
     Active Substance: VALPROIC ACID
     Indication: COMPLEX PARTIAL SEIZURES
     Route: 065
  4. LEVETIRACETAM. [Suspect]
     Active Substance: LEVETIRACETAM
     Indication: COMPLEX PARTIAL SEIZURES
     Route: 065
  5. LAMOTRIGINE. [Suspect]
     Active Substance: LAMOTRIGINE
     Dosage: PM
     Route: 065
  6. VITAMIN D [Concomitant]
     Active Substance: CHOLECALCIFEROL
     Indication: PRODUCT USED FOR UNKNOWN INDICATION
     Route: 065
  7. LAMOTRIGINE. [Suspect]
     Active Substance: LAMOTRIGINE
     Indication: COMPLEX PARTIAL SEIZURES
     Route: 065
  8. CALCIUM [Concomitant]
     Active Substance: CALCIUM
     Indication: PRODUCT USED FOR UNKNOWN INDICATION
     Route: 065
  9. LAMOTRIGINE. [Suspect]
     Active Substance: LAMOTRIGINE
     Route: 065
  10. CARBAMAZEPINE. [Suspect]
     Active Substance: CARBAMAZEPINE
     Indication: COMPLEX PARTIAL SEIZURES
     Route: 065
  11. FOLIC ACID. [Concomitant]
     Active Substance: FOLIC ACID
     Indication: PRODUCT USED FOR UNKNOWN INDICATION
     Route: 065

REACTIONS (2)
  - Ear disorder [Unknown]
  - Foetal exposure during pregnancy [Unknown]
